FAERS Safety Report 19754904 (Version 4)
Quarter: 2022Q1

REPORT INFORMATION
  Report Type: Report from Study
  Country: US (occurrence: US)
  Receive Date: 20210827
  Receipt Date: 20220311
  Transmission Date: 20220423
  Serious: No
  Sender: FDA-Public Use
  Company Number: US-BIOVITRUM-2021US7733

PATIENT
  Sex: Female

DRUGS (1)
  1. KINERET [Suspect]
     Active Substance: ANAKINRA
     Indication: Rheumatoid arthritis
     Route: 058
     Dates: start: 20190417

REACTIONS (5)
  - Fall [Unknown]
  - Bone contusion [Unknown]
  - Bone loss [Unknown]
  - Diarrhoea [Unknown]
  - Escherichia urinary tract infection [Unknown]
